FAERS Safety Report 8971165 (Version 1)
Quarter: 2012Q4

REPORT INFORMATION
  Report Type: 
  Country: GB (occurrence: GB)
  Receive Date: 20121218
  Receipt Date: 20121218
  Transmission Date: 20130627
  Serious: Yes (Life-Threatening, Other)
  Sender: FDA-Public Use
  Company Number: GB-PFIZER INC-2012314466

PATIENT
  Age: 60 Year
  Sex: Male
  Weight: 100 kg

DRUGS (8)
  1. CHAMPIX [Suspect]
     Indication: SMOKING CESSATION THERAPY
     Route: 048
     Dates: start: 20120927, end: 20121101
  2. AMLODIPINE [Concomitant]
  3. TIOTROPIUM [Concomitant]
  4. FUROSEMIDE [Concomitant]
     Dosage: 40 mg (unit dose), UNK
  5. FUROSEMIDE [Concomitant]
     Dosage: 60 mg, UNK
  6. SIMVASTATIN [Concomitant]
     Dosage: 20mg every night.
  7. ACETYLSALICYLIC ACID [Concomitant]
     Dosage: 75 mg once daily
  8. SALBUTAMOL [Concomitant]
     Dosage: salbutamol metered dose inhaler - two puffs as required.

REACTIONS (5)
  - Atrial fibrillation [Not Recovered/Not Resolved]
  - Insomnia [Unknown]
  - Dyspnoea [Unknown]
  - Chest discomfort [Unknown]
  - Cardiac failure congestive [Unknown]
